FAERS Safety Report 4654338-3 (Version None)
Quarter: 2005Q2

REPORT INFORMATION
  Report Type: 
  Country: None (occurrence: None)
  Receive Date: 20050404
  Receipt Date: 20041123
  Transmission Date: 20051028
  Serious: No
  Sender: FDA-Public Use
  Company Number: USA041080339

PATIENT
  Age: 45 Year
  Sex: Female

DRUGS (4)
  1. CYMBALTA [Suspect]
     Dosage: 60 MG/1 DAY
     Dates: start: 20041025, end: 20041101
  2. PROTONIX [Concomitant]
  3. TYLENOL (CAPLET) [Concomitant]
  4. LEXAPRO [Concomitant]

REACTIONS (2)
  - LIBIDO INCREASED [None]
  - URINARY INCONTINENCE [None]
